FAERS Safety Report 15805726 (Version 1)
Quarter: 2019Q1

REPORT INFORMATION
  Report Type: Report from Study
  Country: US (occurrence: US)
  Receive Date: 20190110
  Receipt Date: 20190110
  Transmission Date: 20190417
  Serious: Yes (Hospitalization, Other)
  Sender: FDA-Public Use
  Company Number: US-SA-2019SA005705

PATIENT
  Age: 48 Year
  Sex: Female

DRUGS (1)
  1. ENOXAPARIN SODIUM. [Suspect]
     Active Substance: ENOXAPARIN SODIUM
     Indication: RENAL FAILURE
     Dosage: 120 MG, BID
     Route: 058
     Dates: start: 1987

REACTIONS (9)
  - Pulmonary embolism [Recovered/Resolved]
  - Transient ischaemic attack [Recovered/Resolved]
  - Scar [Recovered/Resolved]
  - Renal transplant [Unknown]
  - Thrombosis [Recovered/Resolved]
  - Thrombosis [Recovered/Resolved]
  - Cerebral haemorrhage [Recovered/Resolved]
  - Renal transplant [Unknown]
  - Thrombosis [Recovered/Resolved]

NARRATIVE: CASE EVENT DATE: 1989
